FAERS Safety Report 20169307 (Version 1)
Quarter: 2021Q4

REPORT INFORMATION
  Report Type: Report from Study
  Country: FR (occurrence: FR)
  Receive Date: 20211210
  Receipt Date: 20211210
  Transmission Date: 20220303
  Serious: Yes (Other)
  Sender: FDA-Public Use
  Company Number: FR-ABBVIE-21K-056-4192329-00

PATIENT
  Age: 73 Year

DRUGS (3)
  1. CARBIDOPA\LEVODOPA [Suspect]
     Active Substance: CARBIDOPA\LEVODOPA
     Indication: Parkinson^s disease
     Route: 050
     Dates: start: 201703
  2. CARBIDOPA\LEVODOPA [Suspect]
     Active Substance: CARBIDOPA\LEVODOPA
  3. SINEMET [Concomitant]
     Active Substance: CARBIDOPA\LEVODOPA
     Indication: Product used for unknown indication
     Dosage: 100/10MG?1.5 TABLETS ON EACH NIGHT AWAKENING

REACTIONS (4)
  - Visual impairment [Not Recovered/Not Resolved]
  - Restless legs syndrome [Unknown]
  - Dystonia [Unknown]
  - Glaucoma [Unknown]

NARRATIVE: CASE EVENT DATE: 20210701
